FAERS Safety Report 12756033 (Version 1)
Quarter: 2016Q3

REPORT INFORMATION
  Report Type: Spontaneous
  Country: DE (occurrence: DE)
  Receive Date: 20160916
  Receipt Date: 20160916
  Transmission Date: 20161109
  Serious: Yes (Hospitalization)
  Sender: FDA-Public Use
  Company Number: DE-MUNDIPHARMA DS AND PHARMACOVIGILANCE-DEU-2016-0018271

PATIENT
  Sex: Male

DRUGS (2)
  1. NORSPAN [Interacting]
     Active Substance: BUPRENORPHINE
     Dosage: 20 UNK, Q1H
     Route: 062
  2. NORSPAN [Suspect]
     Active Substance: BUPRENORPHINE
     Indication: PAIN
     Dosage: 10 MCG, UNK
     Route: 062

REACTIONS (16)
  - Drug interaction [Recovered/Resolved]
  - Aggression [Recovering/Resolving]
  - Hallucination [Recovering/Resolving]
  - Diarrhoea [Recovering/Resolving]
  - Walking disability [Recovering/Resolving]
  - Sleep disorder [Recovering/Resolving]
  - Disturbance in attention [Recovering/Resolving]
  - Depression [Recovering/Resolving]
  - Nightmare [Recovering/Resolving]
  - Dyspepsia [Recovering/Resolving]
  - Abdominal pain upper [Recovering/Resolving]
  - Drug effect decreased [Recovered/Resolved]
  - Dementia [Recovering/Resolving]
  - Confusional state [Recovering/Resolving]
  - Malaise [Recovering/Resolving]
  - Vomiting [Recovering/Resolving]
